FAERS Safety Report 9610875 (Version 1)
Quarter: 2013Q4

REPORT INFORMATION
  Report Type: Not Available
  Country: SE (occurrence: SE)
  Receive Date: 20131009
  Receipt Date: 20131009
  Transmission Date: 20140711
  Serious: Yes (Hospitalization)
  Sender: FDA-Public Use
  Company Number: SE-NAPPMUNDI-GBR-2013-0015900

PATIENT
  Age: 27 Year
  Sex: Female

DRUGS (13)
  1. OXYCONTIN DEPOTTABLETIT [Suspect]
     Indication: PAIN
     Dosage: 10 MG, BID
     Route: 048
  2. OXYCONTIN DEPOTTABLETIT [Suspect]
     Dosage: 15 MG, BID
     Route: 048
  3. ABILIFY [Concomitant]
     Dosage: 10 MG, UNK
  4. CONCERTA [Concomitant]
     Dosage: 36 MG, UNK
  5. OMEPRAZOL                          /00661201/ [Concomitant]
  6. BISOPROLOL [Concomitant]
  7. RAMIPRIL [Concomitant]
  8. METOLAZON [Concomitant]
     Dosage: 5 MG, UNK
  9. PANODIL [Concomitant]
     Dosage: 500 MG, UNK
  10. FURIX [Concomitant]
     Dosage: 40 MG, UNK
  11. XANOR [Concomitant]
     Dosage: 2 MG, UNK
  12. STILNOCT [Concomitant]
     Dosage: 5 MG, UNK
  13. SPIRONOLAKTON [Concomitant]

REACTIONS (7)
  - Overdose [Recovering/Resolving]
  - Acidosis [Recovering/Resolving]
  - Cardiac failure [Recovering/Resolving]
  - Weight increased [Unknown]
  - Respiratory failure [Recovering/Resolving]
  - Hypotension [Recovering/Resolving]
  - Dehydration [Recovering/Resolving]
